FAERS Safety Report 11855123 (Version 1)
Quarter: 2015Q4

REPORT INFORMATION
  Report Type: Spontaneous
  Country: US (occurrence: None)
  Receive Date: 20151218
  Receipt Date: 20151218
  Transmission Date: 20160305
  Serious: Yes (Other)
  Sender: FDA-Public Use
  Company Number: None

PATIENT
  Age: 55 Year
  Sex: Female
  Weight: 57.02 kg

DRUGS (1)
  1. LACTATED RINGERS [Suspect]
     Active Substance: CALCIUM CHLORIDE\POTASSIUM CHLORIDE\SODIUM CHLORIDE\SODIUM LACTATE

REACTIONS (7)
  - Multi-organ failure [None]
  - Haemolytic uraemic syndrome [None]
  - Hypotension [None]
  - Thrombotic thrombocytopenic purpura [None]
  - Brain death [None]
  - Ventricular arrhythmia [None]
  - Lactic acidosis [None]

NARRATIVE: CASE EVENT DATE: 20151113
